FAERS Safety Report 16121866 (Version 1)
Quarter: 2019Q1

REPORT INFORMATION
  Report Type: Spontaneous
  Country: IT (occurrence: IT)
  Receive Date: 20190327
  Receipt Date: 20190327
  Transmission Date: 20190418
  Serious: Yes (Hospitalization)
  Sender: FDA-Public Use
  Company Number: IT-ACCORD-115875

PATIENT
  Age: 67 Year
  Sex: Female

DRUGS (6)
  1. SIMVASTATIN. [Concomitant]
     Active Substance: SIMVASTATIN
  2. CARDIRENE [Concomitant]
     Active Substance: ASPIRIN DL-LYSINE
     Dosage: 75 MG
  3. DIBASE [Concomitant]
     Active Substance: CHOLECALCIFEROL
  4. METHOTREXATE. [Suspect]
     Active Substance: METHOTREXATE
     Indication: RHEUMATOID ARTHRITIS
     Route: 042
     Dates: start: 20180101, end: 20180128
  5. TRIATEC [Concomitant]
     Dosage: 2.5 MG TABLETS
  6. FOLINA [Concomitant]
     Active Substance: FOLIC ACID

REACTIONS (4)
  - Chest pain [Unknown]
  - Asthenia [Unknown]
  - Respiratory failure [Unknown]
  - Bronchitis [Unknown]

NARRATIVE: CASE EVENT DATE: 20180121
